FAERS Safety Report 17716612 (Version 2)
Quarter: 2020Q2

REPORT INFORMATION
  Report Type: Spontaneous
  Country: US (occurrence: US)
  Receive Date: 20200428
  Receipt Date: 20200524
  Transmission Date: 20200714
  Serious: No
  Sender: FDA-Public Use
  Company Number: US-ASTRAZENECA-2020SE52164

PATIENT
  Age: 32854 Day
  Sex: Female
  Weight: 104.8 kg

DRUGS (2)
  1. SYMBICORT [Suspect]
     Active Substance: BUDESONIDE\FORMOTEROL FUMARATE DIHYDRATE
     Indication: CHRONIC OBSTRUCTIVE PULMONARY DISEASE
     Dosage: 160/4.5 UG, 2 RESPIRATORY INHALATIONS EACH TIME, TWO TIMES A DAY
     Route: 055
  2. SYMBICORT [Suspect]
     Active Substance: BUDESONIDE\FORMOTEROL FUMARATE DIHYDRATE
     Indication: CHRONIC OBSTRUCTIVE PULMONARY DISEASE
     Dosage: 160/4.5 UG, 2 RESPIRATORY INHALATIONS EACH TIME, TWO TIMES A DAY
     Route: 055

REACTIONS (10)
  - Secretion discharge [Not Recovered/Not Resolved]
  - Lung disorder [Unknown]
  - Cough [Not Recovered/Not Resolved]
  - Product dose omission [Not Recovered/Not Resolved]
  - Wrong technique in device usage process [Unknown]
  - Bronchitis [Unknown]
  - Bronchial secretion retention [Unknown]
  - Aphonia [Unknown]
  - Intentional device misuse [Unknown]
  - Device issue [Unknown]

NARRATIVE: CASE EVENT DATE: 202001
